FAERS Safety Report 10464884 (Version 1)
Quarter: 2014Q3

REPORT INFORMATION
  Report Type: Spontaneous
  Country: DE (occurrence: DE)
  Receive Date: 20140919
  Receipt Date: 20140919
  Transmission Date: 20150326
  Serious: Yes (Congenital Anomaly)
  Sender: FDA-Public Use
  Company Number: DE-WATSON-2014-20076

PATIENT
  Age: 0 Day
  Sex: Male
  Weight: 1 kg

DRUGS (9)
  1. METOPROLOL (UNKNOWN) [Suspect]
     Active Substance: METOPROLOL
     Indication: HYPERTENSION
     Dosage: 150 MG, DAILY
     Route: 064
     Dates: start: 20121206, end: 20130601
  2. METHYLDOPA. [Concomitant]
     Active Substance: METHYLDOPA
     Indication: HYPERTENSION
     Dosage: 75 MG, DAILY
     Route: 064
     Dates: start: 20130312, end: 20130619
  3. FOLIO [Concomitant]
     Active Substance: FOLIC ACID
     Indication: PROPHYLAXIS OF NEURAL TUBE DEFECT
     Dosage: 0.4 MG, DAILY
     Route: 064
     Dates: start: 20121206, end: 20130314
  4. VALSARTAN (UNKNOWN) [Suspect]
     Active Substance: VALSARTAN
     Indication: HYPERTENSION
     Dosage: 160 MG, DAILY
     Route: 064
     Dates: start: 20121206, end: 20130311
  5. THYROXIN [Concomitant]
     Active Substance: LEVOTHYROXINE
     Indication: HYPOTHYROIDISM
     Dosage: 75 ?G, DAILY
     Route: 064
     Dates: start: 20121206, end: 20130619
  6. NOVORAPID [Concomitant]
     Active Substance: INSULIN ASPART
     Indication: TYPE 1 DIABETES MELLITUS
     Dosage: UNK UNK, UNKNOWN
     Route: 064
     Dates: start: 20121206, end: 20130619
  7. DIAZEPAM. [Concomitant]
     Active Substance: DIAZEPAM
     Indication: ACUTE STRESS DISORDER
     Dosage: WHEN NEEDED
     Route: 064
  8. HYDROCHLOROTHIAZIDE (UNKNOWN) [Suspect]
     Active Substance: HYDROCHLOROTHIAZIDE
     Indication: HYPERTENSION
     Dosage: 50 MG, DAILY
     Route: 064
     Dates: start: 20121206, end: 20130314
  9. NEPRESOL                           /00017902/ [Concomitant]
     Indication: HYPERTENSION
     Dosage: UNK UNK, UNKNOWN
     Route: 064

REACTIONS (10)
  - Patent ductus arteriosus [Recovered/Resolved with Sequelae]
  - Hypospadias [Not Recovered/Not Resolved]
  - Feeding disorder neonatal [Recovered/Resolved]
  - Neonatal respiratory distress syndrome [Recovered/Resolved]
  - Atrial septal defect [Not Recovered/Not Resolved]
  - Foetal exposure during pregnancy [Not Recovered/Not Resolved]
  - Resuscitation [Recovered/Resolved]
  - Ventricular septal defect [Recovering/Resolving]
  - Pulmonary valve stenosis congenital [Not Recovered/Not Resolved]
  - Hypoacusis [Not Recovered/Not Resolved]

NARRATIVE: CASE EVENT DATE: 20130619
